FAERS Safety Report 15573179 (Version 1)
Quarter: 2018Q4

REPORT INFORMATION
  Report Type: Spontaneous
  Country: CN (occurrence: CN)
  Receive Date: 20181101
  Receipt Date: 20181101
  Transmission Date: 20190205
  Serious: Yes (Hospitalization)
  Sender: FDA-Public Use
  Company Number: CN-ROCHE-2207982

PATIENT
  Age: 72 Year
  Sex: Male
  Weight: 52 kg

DRUGS (3)
  1. PACLITAXEL. [Suspect]
     Active Substance: PACLITAXEL
     Indication: ADENOCARCINOMA
     Dosage: MOST RECENT DOSE (220 MG): 20/AUG/2018 (SIXTH CYCLE)
     Route: 041
  2. HERCEPTIN [Suspect]
     Active Substance: TRASTUZUMAB
     Indication: ADENOCARCINOMA
     Dosage: MOST RECENT DOSE (347 MG): 20/AUG/2018 (SIXTH CYCLE)
     Route: 041
  3. XELODA [Suspect]
     Active Substance: CAPECITABINE
     Indication: ADENOCARCINOMA
     Dosage: MOST RECENT DOSE (1.5 G): 20/AUG/2018 (SIXTH CYCLE)
     Route: 048

REACTIONS (4)
  - Bone marrow failure [Recovering/Resolving]
  - Anaemia [Recovering/Resolving]
  - White blood cell count decreased [Recovering/Resolving]
  - Neutrophil count decreased [Recovering/Resolving]

NARRATIVE: CASE EVENT DATE: 20180825
